FAERS Safety Report 5473932-3 (Version None)
Quarter: 2007Q3

REPORT INFORMATION
  Report Type: 
  Country: None (occurrence: None)
  Receive Date: 20070831
  Receipt Date: 20070604
  Transmission Date: 20080115
  Serious: No
  Sender: FDA-Public Use
  Company Number: 242423

PATIENT
  Age: 88 Year
  Sex: Male

DRUGS (15)
  1. LUCENTIS [Suspect]
     Indication: MACULAR DEGENERATION
     Dosage: INTRAVITREAL
     Dates: start: 20070530
  2. MUCINEX [Concomitant]
  3. COUMADIN [Concomitant]
  4. LOPRESSOR [Concomitant]
  5. DIGOXIN [Concomitant]
  6. ZOCOR [Concomitant]
  7. ISOSORBIDE (ISOSORBIDE NOS) [Concomitant]
  8. FLOMAX [Concomitant]
  9. PLAVIX [Concomitant]
  10. ASPIRIN [Concomitant]
  11. RENAGEL [Concomitant]
  12. LACTULOSE [Concomitant]
  13. CARDURA [Concomitant]
  14. DEXTROL (DEXTROSE) [Concomitant]
  15. PROTONIX [Concomitant]

REACTIONS (2)
  - EYE PAIN [None]
  - VITREOUS FLOATERS [None]
